FAERS Safety Report 21006891 (Version 1)
Quarter: 2022Q2

REPORT INFORMATION
  Report Type: Spontaneous
  Country: US (occurrence: US)
  Receive Date: 20220625
  Receipt Date: 20220625
  Transmission Date: 20220720
  Serious: Yes (Hospitalization)
  Sender: FDA-Public Use
  Company Number: US-LUPIN PHARMACEUTICALS INC.-2022-08951

PATIENT
  Age: 76 Year
  Sex: Female

DRUGS (5)
  1. DULOXETINE [Suspect]
     Active Substance: DULOXETINE
     Indication: Major depression
     Dosage: 60 MG, QD
     Route: 065
  2. LORAZEPAM [Suspect]
     Active Substance: LORAZEPAM
     Indication: Anxiety disorder
     Dosage: 0.5 MG, BID
     Route: 065
  3. BUSPIRONE [Suspect]
     Active Substance: BUSPIRONE HYDROCHLORIDE
     Indication: Anxiety disorder
     Dosage: 10 MG, BID
     Route: 065
  4. SALMETEROL [Concomitant]
     Active Substance: SALMETEROL
     Indication: Chronic obstructive pulmonary disease
     Dosage: 50 MICROGRAM, BID
     Route: 055
  5. AMLODIPINE [Concomitant]
     Active Substance: AMLODIPINE BESYLATE
     Indication: Hypertension
     Dosage: 10 MG, QD
     Route: 065

REACTIONS (1)
  - Drug ineffective [Unknown]
